FAERS Safety Report 20947400 (Version 1)
Quarter: 2022Q2

REPORT INFORMATION
  Report Type: Spontaneous
  Country: RU (occurrence: RU)
  Receive Date: 20220610
  Receipt Date: 20220610
  Transmission Date: 20220721
  Serious: Yes (Hospitalization)
  Sender: FDA-Public Use
  Company Number: RU-ABBOTT-2022A-1349555

PATIENT
  Age: 1 Year
  Sex: Female

DRUGS (1)
  1. CLARITHROMYCIN [Suspect]
     Active Substance: CLARITHROMYCIN
     Indication: Product used for unknown indication
     Dosage: PRESCRIBED AT THE RATE OF 15 MG/1 KG PER DAY FOR 2 DOSES
     Route: 065

REACTIONS (3)
  - Blood urine present [Unknown]
  - Leukocytosis [Unknown]
  - Product quality issue [Unknown]

NARRATIVE: CASE EVENT DATE: 20220601
